FAERS Safety Report 20394134 (Version 1)
Quarter: 2022Q1

REPORT INFORMATION
  Report Type: Spontaneous
  Country: US (occurrence: US)
  Receive Date: 20220129
  Receipt Date: 20220129
  Transmission Date: 20220423
  Serious: No
  Sender: FDA-Public Use
  Company Number: US-SANOFI-00944784

PATIENT
  Age: 86 Year
  Sex: Male

DRUGS (1)
  1. ENOXAPARIN SODIUM [Suspect]
     Active Substance: ENOXAPARIN SODIUM
     Indication: Surgery
     Dosage: DRUG STRUCTURE DOSAGE : 100 MG DRUG INTERVAL DOSAGE : DAILY X 7 DOSES DRUG TREATMENT DURATION: NOT S
     Dates: start: 20220121

REACTIONS (1)
  - Product storage error [Unknown]

NARRATIVE: CASE EVENT DATE: 20220120
